FAERS Safety Report 10515397 (Version 1)
Quarter: 2014Q3

REPORT INFORMATION
  Report Type: Spontaneous
  Country: US (occurrence: None)
  Receive Date: 20140926
  Receipt Date: 20140926
  Transmission Date: 20150326
  Serious: No
  Sender: FDA-Public Use
  Company Number: 1000070149

PATIENT
  Age: 66 Year
  Sex: Female

DRUGS (5)
  1. DILTIAZEM (DILTIAZEM HYDROCHLORIDE) (DILTIAZEM HYDROCHLORIDE) [Concomitant]
     Active Substance: DILTIAZEM
  2. RALOXIFENE (RALOXIFENE) (RALOXIFENE) [Concomitant]
  3. TRIAMTERENE/HCTZ (DYAZIDE) (DYAZIDE) [Concomitant]
  4. MVI (VITAMINS NOS) (VITAMINS NOS) [Concomitant]
  5. LINZESS [Suspect]
     Active Substance: LINACLOTIDE
     Indication: CONSTIPATION
     Dosage: 145 MCG, 1 IN 1 D), ORAL
     Route: 048
     Dates: start: 20140823, end: 20140824

REACTIONS (3)
  - Diarrhoea [None]
  - Abdominal distension [None]
  - Abdominal pain [None]

NARRATIVE: CASE EVENT DATE: 20140823
